FAERS Safety Report 17415778 (Version 1)
Quarter: 2020Q1

REPORT INFORMATION
  Report Type: Spontaneous
  Country: FR (occurrence: FR)
  Receive Date: 20200213
  Receipt Date: 20200213
  Transmission Date: 20200409
  Serious: Yes (Death)
  Sender: FDA-Public Use
  Company Number: FR-ELI_LILLY_AND_COMPANY-FR202002004740

PATIENT
  Age: 69 Year
  Sex: Male
  Weight: 74 kg

DRUGS (2)
  1. ANAFRANIL [Suspect]
     Active Substance: CLOMIPRAMINE HYDROCHLORIDE
     Indication: DEPRESSION
     Dosage: UNK UNK, UNKNOWN
     Route: 048
     Dates: start: 1985
  2. ZYPREXA [Suspect]
     Active Substance: OLANZAPINE
     Indication: MAJOR DEPRESSION
     Dosage: 10 MG, DAILY
     Route: 048
     Dates: start: 2010

REACTIONS (1)
  - Myocardial infarction [Fatal]

NARRATIVE: CASE EVENT DATE: 20191220
